FAERS Safety Report 7075403-X (Version None)
Quarter: 2010Q4

REPORT INFORMATION
  Report Type: 
  Country: None (occurrence: None)
  Receive Date: 20101030
  Receipt Date: 20100909
  Transmission Date: 20110411
  Serious: No
  Sender: FDA-Public Use
  Company Number: US-WYE-H17476610

PATIENT
  Age: 52 Year
  Sex: Female
  Weight: 63.56 kg

DRUGS (2)
  1. ALAVERT D-12 [Suspect]
     Indication: SINUS CONGESTION
     Route: 048
     Dates: start: 20100902, end: 20100907
  2. CITALOPRAM HYDROBROMIDE [Concomitant]

REACTIONS (2)
  - DYSPNOEA [None]
  - HYPERVENTILATION [None]
